FAERS Safety Report 7528723-6 (Version None)
Quarter: 2011Q2

REPORT INFORMATION
  Report Type: 
  Country: None (occurrence: None)
  Receive Date: 20110518
  Receipt Date: 20110216
  Transmission Date: 20111010
  Serious: Yes (Other)
  Sender: FDA-Public Use
  Company Number: M-11-003

PATIENT
  Age: 54 Year
  Sex: Female

DRUGS (2)
  1. DOXYCYCLINE [Suspect]
     Dosage: ORAL (047)
     Route: 048
  2. ORACEA [Concomitant]

REACTIONS (2)
  - HEADACHE [None]
  - RASH [None]
